FAERS Safety Report 6094702-1 (Version None)
Quarter: 2009Q1

REPORT INFORMATION
  Report Type: 
  Country: None (occurrence: None)
  Receive Date: 20090224
  Receipt Date: 20090212
  Transmission Date: 20090719
  Serious: Yes (Hospitalization, Other)
  Sender: FDA-Public Use
  Company Number: RENA-1000348

PATIENT
  Age: 71 Year
  Sex: Male
  Weight: 82 kg

DRUGS (18)
  1. RENAGEL [Suspect]
     Indication: HYPERPHOSPHATAEMIA
     Dosage: 800 MG, ORAL
     Route: 048
     Dates: start: 20081117, end: 20081208
  2. AMLODIPINE [Concomitant]
  3. TORASEMIDE (TORASEMIDE) TABLET [Concomitant]
  4. XIPAMIDE (XIPAMIDE) TABLET [Concomitant]
  5. TAMSULOSIN (TAMSULOSIN) TABLET [Concomitant]
  6. BETAXOLOL (BETAXOLOL) TABLET [Concomitant]
  7. SALMETEROL (FLUTICASONE PROPIONATE) [Concomitant]
  8. IRON (IRON) CAPSULE [Concomitant]
  9. ALFACALCIDOL (ALFACALCIDOL) CAPSULE [Concomitant]
  10. CANDESARTAN (CANDESARTAN) TABLET [Concomitant]
  11. METAMIZOL (METAMIZOLE MAGNESIUM) [Concomitant]
  12. ACETYLSALICYLIC ACID (ACETYLSALICYLIC ACID) TABLET [Concomitant]
  13. SPIRONOLACTONE [Concomitant]
  14. SODIUM CHLORIDE 0.9% [Concomitant]
  15. SODIUM CARBONATE (SODIUM BICARBONATE) [Concomitant]
  16. POTASSIUM CHLORIDE [Concomitant]
  17. MACROGOL (MACROGOL) [Concomitant]
  18. KALIUM (POTASSIUM CHLORIDE) CAPSULE [Concomitant]

REACTIONS (7)
  - ACUTE ABDOMEN [None]
  - CONSTIPATION [None]
  - FLATULENCE [None]
  - HAEMODIALYSIS [None]
  - HYDROTHORAX [None]
  - PERITONEAL DIALYSIS COMPLICATION [None]
  - PLEURAL EFFUSION [None]
